FAERS Safety Report 9242520 (Version 1)
Quarter: 2013Q2

REPORT INFORMATION
  Report Type: Spontaneous
  Country: FR (occurrence: FR)
  Receive Date: 20130419
  Receipt Date: 20130419
  Transmission Date: 20140414
  Serious: Yes (Hospitalization)
  Sender: FDA-Public Use
  Company Number: FR-BRISTOL-MYERS SQUIBB COMPANY-18782250

PATIENT
  Age: 77 Year
  Sex: Female

DRUGS (3)
  1. TAXOL INJ [Suspect]
     Indication: METASTASES TO LUNG
     Dosage: TAXOL (PACLITAXEL) 0.1429 PER COURSE
     Route: 042
     Dates: start: 20121009, end: 20121113
  2. PRITOR [Concomitant]
  3. PARACETAMOL [Concomitant]

REACTIONS (1)
  - Interstitial lung disease [Recovering/Resolving]
